FAERS Safety Report 8154371-3 (Version None)
Quarter: 2012Q1

REPORT INFORMATION
  Report Type: 
  Country: None (occurrence: None)
  Receive Date: 20120103
  Receipt Date: 20111122
  Transmission Date: 20120608
  Serious: No
  Sender: FDA-Public Use
  Company Number: AE-2011-002789

PATIENT
  Age: 56 Year
  Sex: Female
  Weight: 81.6475 kg

DRUGS (6)
  1. RIBAVIRIN [Concomitant]
  2. PRILOSEC [Concomitant]
  3. QUINAPRIL HCL [Concomitant]
  4. NORVASC [Concomitant]
  5. PEGASYS [Concomitant]
  6. INCIVEK [Suspect]
     Dosage: 2250 MG (750 MG, 1 IN 8 HR) , ORAL
     Route: 048
     Dates: start: 20111019

REACTIONS (2)
  - INCORRECT DOSE ADMINISTERED [None]
  - HEADACHE [None]
